FAERS Safety Report 13146192 (Version 2)
Quarter: 2018Q1

REPORT INFORMATION
  Report Type: Spontaneous
  Country: US (occurrence: US)
  Receive Date: 20170124
  Receipt Date: 20180123
  Transmission Date: 20180508
  Serious: No
  Sender: FDA-Public Use
  Company Number: US-AMGEN-USASP2017001102

PATIENT
  Age: 87 Year
  Sex: Female
  Weight: 67 kg

DRUGS (9)
  1. HYDROXYCHLOROQUINE [Concomitant]
     Active Substance: HYDROXYCHLOROQUINE
  2. PLAVIX [Concomitant]
     Active Substance: CLOPIDOGREL BISULFATE
  3. ASA [Concomitant]
     Active Substance: ASPIRIN
  4. LISINOPRIL. [Concomitant]
     Active Substance: LISINOPRIL
  5. REPATHA [Suspect]
     Active Substance: EVOLOCUMAB
     Indication: LIPIDS ABNORMAL
  6. PREDNISONE. [Concomitant]
     Active Substance: PREDNISONE
  7. MVI [Concomitant]
     Active Substance: VITAMINS
  8. REPATHA [Suspect]
     Active Substance: EVOLOCUMAB
     Indication: CORONARY ARTERY DISEASE
     Dosage: 75 MG, Q2WK
     Route: 058
     Dates: start: 201610, end: 20170103
  9. METOPROLOL. [Concomitant]
     Active Substance: METOPROLOL

REACTIONS (5)
  - Muscle spasms [Recovering/Resolving]
  - Oropharyngeal pain [Recovering/Resolving]
  - Off label use [Unknown]
  - Wheezing [Recovering/Resolving]
  - Pain [Recovering/Resolving]

NARRATIVE: CASE EVENT DATE: 20170103
